FAERS Safety Report 9013111 (Version 2)
Quarter: 2013Q1

REPORT INFORMATION
  Report Type: Spontaneous
  Country: US (occurrence: US)
  Receive Date: 20130114
  Receipt Date: 20130201
  Transmission Date: 20140127
  Serious: No
  Sender: FDA-Public Use
  Company Number: US-009507513-1301USA004454

PATIENT
  Age: 20 Year
  Sex: Female
  Weight: 52.15 kg

DRUGS (2)
  1. IMPLANON [Suspect]
     Indication: CONTRACEPTION
     Dosage: 1 DF, UP TO 3 YEARS
     Dates: start: 20110707
  2. PROZAC [Concomitant]
     Dosage: 1 DF, QD

REACTIONS (3)
  - Amenorrhoea [Recovered/Resolved]
  - Dysmenorrhoea [Unknown]
  - Back pain [Unknown]
